FAERS Safety Report 5653524-3 (Version None)
Quarter: 2008Q1

REPORT INFORMATION
  Report Type: 
  Country: None (occurrence: None)
  Receive Date: 20080131
  Receipt Date: 20071108
  Transmission Date: 20080703
  Serious: No
  Sender: FDA-Public Use
  Company Number: US200711002299

PATIENT
  Age: 36 Year
  Sex: Female

DRUGS (3)
  1. BYETTA [Suspect]
     Indication: TYPE 2 DIABETES MELLITUS
     Dosage: 5 UG, 2/D, SUBCUTANEOUS;10 UG, 2/D, SUBCUTANEOUS;10 UG, SUBCUTANEOUS
     Route: 058
     Dates: start: 20071001, end: 20071107
  2. BYETTA [Suspect]
     Indication: TYPE 2 DIABETES MELLITUS
     Dosage: 5 UG, 2/D, SUBCUTANEOUS;10 UG, 2/D, SUBCUTANEOUS;10 UG, SUBCUTANEOUS
     Route: 058
     Dates: start: 20071108, end: 20071108
  3. BYETTA [Suspect]
     Indication: TYPE 2 DIABETES MELLITUS
     Dosage: 5 UG, 2/D, SUBCUTANEOUS;10 UG, 2/D, SUBCUTANEOUS;10 UG, SUBCUTANEOUS
     Route: 058
     Dates: start: 20071108

REACTIONS (1)
  - INCORRECT DOSE ADMINISTERED [None]
